FAERS Safety Report 6663559-X (Version None)
Quarter: 2010Q2

REPORT INFORMATION
  Report Type: 
  Country: None (occurrence: None)
  Receive Date: 20100401
  Receipt Date: 20100329
  Transmission Date: 20101027
  Serious: Yes (Hospitalization, Other)
  Sender: FDA-Public Use
  Company Number: BE-WYE-H06806008

PATIENT
  Sex: Male
  Weight: 85 kg

DRUGS (3)
  1. PROGRAF [Suspect]
     Indication: PROPHYLAXIS AGAINST TRANSPLANT REJECTION
     Dosage: ^3 MG - 2 MG/DAY^
     Route: 048
     Dates: start: 20061223
  2. PANTOPRAZOLE SODIUM [Concomitant]
     Route: 048
     Dates: start: 20060801
  3. CELLCEPT [Suspect]
     Indication: PROPHYLAXIS AGAINST TRANSPLANT REJECTION
     Route: 048
     Dates: start: 20070702

REACTIONS (1)
  - METASTASES TO ADRENALS [None]
